FAERS Safety Report 5625628-2 (Version None)
Quarter: 2008Q1

REPORT INFORMATION
  Report Type: 
  Country: None (occurrence: None)
  Receive Date: 20080208
  Receipt Date: 20080208
  Transmission Date: 20080703
  Serious: Yes (Hospitalization)
  Sender: FDA-Public Use
  Company Number: None

PATIENT
  Age: 57 Year
  Sex: Male
  Weight: 105.6881 kg

DRUGS (5)
  1. TARCEVA [Suspect]
     Indication: OROPHARYNGEAL CANCER STAGE UNSPECIFIED
     Dosage: 150MG PO QD
     Route: 048
     Dates: start: 20080116
  2. TARCEVA [Suspect]
     Indication: SQUAMOUS CELL CARCINOMA
     Dosage: 150MG PO QD
     Route: 048
     Dates: start: 20080116
  3. TARCEVA [Suspect]
     Indication: TONSILLAR DISORDER
     Dosage: 150MG PO QD
     Route: 048
     Dates: start: 20080116
  4. CISPLATIN [Concomitant]
  5. RADIATION THERAPY [Concomitant]

REACTIONS (5)
  - ASTHENIA [None]
  - DEHYDRATION [None]
  - DIARRHOEA [None]
  - DIZZINESS [None]
  - LOSS OF CONSCIOUSNESS [None]
